FAERS Safety Report 19321100 (Version 2)
Quarter: 2021Q2

REPORT INFORMATION
  Report Type: Report from Study
  Country: US (occurrence: US)
  Receive Date: 20210527
  Receipt Date: 20210610
  Transmission Date: 20210717
  Serious: Yes (Hospitalization, Other)
  Sender: FDA-Public Use
  Company Number: US-BIOGEN-2021BI01014730

PATIENT
  Age: 66 Year
  Sex: Male
  Weight: 107.6 kg

DRUGS (3)
  1. TECFIDERA [Suspect]
     Active Substance: DIMETHYL FUMARATE
     Indication: MULTIPLE SCLEROSIS
     Dosage: STARTING DOSE
     Route: 048
     Dates: start: 20190808
  2. TECFIDERA [Suspect]
     Active Substance: DIMETHYL FUMARATE
     Dosage: MAINTENANCE DOSE
     Route: 048
  3. PROVIGIL [Concomitant]
     Active Substance: MODAFINIL
     Indication: SLEEP APNOEA SYNDROME
     Dosage: IN AM
     Route: 065
     Dates: start: 2012

REACTIONS (5)
  - Flushing [Unknown]
  - Abdominal discomfort [Unknown]
  - Intentional overdose [Recovered/Resolved]
  - Acute respiratory failure [Unknown]
  - Hypercapnia [Unknown]

NARRATIVE: CASE EVENT DATE: 202005
